FAERS Safety Report 23387195 (Version 1)
Quarter: 2024Q1

REPORT INFORMATION
  Report Type: Spontaneous
  Country: US (occurrence: US)
  Receive Date: 20240110
  Receipt Date: 20240110
  Transmission Date: 20240410
  Serious: Yes (Hospitalization)
  Sender: FDA-Public Use
  Company Number: US-MYLANLABS-2024M1002517

PATIENT
  Age: 65 Year
  Sex: Male

DRUGS (2)
  1. CABERGOLINE [Suspect]
     Active Substance: CABERGOLINE
     Indication: Secretory adenoma of pituitary
     Dosage: UNK
     Route: 065
  2. OCTREOTIDE [Concomitant]
     Active Substance: OCTREOTIDE
     Indication: Secretory adenoma of pituitary
     Dosage: UNK
     Route: 065

REACTIONS (1)
  - Therapy non-responder [Unknown]
